FAERS Safety Report 7076729-6 (Version None)
Quarter: 2010Q4

REPORT INFORMATION
  Report Type: 
  Country: None (occurrence: None)
  Receive Date: 20101022
  Receipt Date: 20101007
  Transmission Date: 20110411
  Serious: Yes (Other)
  Sender: FDA-Public Use
  Company Number: US-003934

PATIENT
  Age: 37 Year
  Sex: Female
  Weight: 49.8957 kg

DRUGS (5)
  1. PROGESTERONE [Suspect]
     Indication: PREGNANCY
     Dosage: 100 MG TID VAGINAL
     Route: 067
     Dates: start: 20100818, end: 20101001
  2. LEVOXYL [Concomitant]
  3. PROGESTERONE IN OIL [Concomitant]
  4. PRENATAL VITAMINS /01549301/ [Concomitant]
  5. ESTRACE [Concomitant]

REACTIONS (4)
  - DRUG EXPOSURE DURING PREGNANCY [None]
  - FOETAL HEART RATE ABNORMAL [None]
  - INTRA-UTERINE DEATH [None]
  - MATERNAL DRUGS AFFECTING FOETUS [None]
